FAERS Safety Report 9532666 (Version 1)
Quarter: 2013Q2

REPORT INFORMATION
  Report Type: Spontaneous
  Country: US (occurrence: None)
  Receive Date: 20130503
  Receipt Date: 20130503
  Transmission Date: 20140414
  Serious: No
  Sender: FDA-Public Use
  Company Number: 1000041635

PATIENT
  Age: 52 Year
  Sex: Female
  Weight: 73 kg

DRUGS (5)
  1. DALIRESP [Suspect]
     Indication: WEIGHT CONTROL
     Route: 048
     Dates: start: 2012
  2. JANUVIA [Concomitant]
  3. VITAMIN-C [Concomitant]
  4. SUPPLEMENTS NOS (SUPPLEMENTS NOS) (SUPPLEMENTS NOS) [Concomitant]
  5. VITAMIN-D [Suspect]

REACTIONS (2)
  - Weight decreased [None]
  - Off label use [None]
